FAERS Safety Report 14560032 (Version 3)
Quarter: 2018Q1

REPORT INFORMATION
  Report Type: Spontaneous
  Country: RU (occurrence: RU)
  Receive Date: 20180221
  Receipt Date: 20180327
  Transmission Date: 20180509
  Serious: Yes (Other)
  Sender: FDA-Public Use
  Company Number: PHHY2018RU027748

PATIENT
  Age: 63 Year
  Sex: Male

DRUGS (2)
  1. AZARGA [Suspect]
     Active Substance: BRINZOLAMIDE\TIMOLOL MALEATE
     Indication: PREOPERATIVE CARE
  2. AZARGA [Suspect]
     Active Substance: BRINZOLAMIDE\TIMOLOL MALEATE
     Indication: POSTOPERATIVE CARE
     Route: 047

REACTIONS (4)
  - Eye pain [Recovering/Resolving]
  - Chemical burns of eye [Recovering/Resolving]
  - Retinal disorder [Recovering/Resolving]
  - Visual acuity reduced [Recovering/Resolving]

NARRATIVE: CASE EVENT DATE: 20180201
